FAERS Safety Report 7568606-9 (Version None)
Quarter: 2011Q2

REPORT INFORMATION
  Report Type: 
  Country: None (occurrence: None)
  Receive Date: 20110623
  Receipt Date: 20110615
  Transmission Date: 20111010
  Serious: Yes (Other)
  Sender: FDA-Public Use
  Company Number: US-JNJFOC-20110509401

PATIENT
  Sex: Female

DRUGS (2)
  1. OXYCODONE HCL [Concomitant]
     Indication: PAIN
     Dosage: AS NEEDED
     Route: 048
  2. FENTANYL-100 [Suspect]
     Indication: BACK PAIN
     Route: 062
     Dates: start: 20100501

REACTIONS (4)
  - POOR QUALITY DRUG ADMINISTERED [None]
  - DEPENDENCE [None]
  - PRODUCT ADHESION ISSUE [None]
  - PRODUCT QUALITY ISSUE [None]
